FAERS Safety Report 5717833-1 (Version None)
Quarter: 2008Q2

REPORT INFORMATION
  Report Type: 
  Country: None (occurrence: None)
  Receive Date: 20080425
  Receipt Date: 20071126
  Transmission Date: 20081010
  Serious: No
  Sender: FDA-Public Use
  Company Number: US-ABBOTT-07P-163-0426682-00

PATIENT
  Sex: Male
  Weight: 113.63 kg

DRUGS (6)
  1. ERYTHROMYCIN BASE [Suspect]
     Indication: EYE INFECTION
     Route: 048
     Dates: start: 20071025, end: 20071029
  2. DETROL LA [Concomitant]
     Indication: HYPERTONIC BLADDER
     Route: 048
     Dates: start: 20070701, end: 20071025
  3. DETROL LA [Concomitant]
     Indication: PROSTATOMEGALY
  4. AMLODIPINE [Concomitant]
     Indication: BLOOD PRESSURE
     Route: 048
     Dates: start: 20070901, end: 20071025
  5. FISH OIL [Concomitant]
     Indication: ROUTINE HEALTH MAINTENANCE
     Route: 048
     Dates: start: 20040101
  6. CENTRUM [Concomitant]
     Indication: VITAMIN SUPPLEMENTATION
     Route: 048
     Dates: start: 20050101

REACTIONS (2)
  - PARAESTHESIA [None]
  - RASH [None]
